FAERS Safety Report 5722443-6 (Version None)
Quarter: 2008Q2

REPORT INFORMATION
  Report Type: 
  Country: None (occurrence: None)
  Receive Date: 20080429
  Receipt Date: 20071024
  Transmission Date: 20081010
  Serious: No
  Sender: FDA-Public Use
  Company Number: US-ASTRAZENECA-2007UW24724

PATIENT
  Age: 57 Year
  Sex: Female
  Weight: 59 kg

DRUGS (1)
  1. NEXIUM [Suspect]
     Indication: STOMACH DISCOMFORT
     Route: 048
     Dates: start: 20071022

REACTIONS (3)
  - ANXIETY [None]
  - NERVOUSNESS [None]
  - ORAL HERPES [None]
